FAERS Safety Report 7423469-7 (Version None)
Quarter: 2011Q2

REPORT INFORMATION
  Report Type: 
  Country: None (occurrence: None)
  Receive Date: 20110419
  Receipt Date: 20110411
  Transmission Date: 20111010
  Serious: Yes (Other)
  Sender: FDA-Public Use
  Company Number: DE-ROCHE-771665

PATIENT
  Sex: Female

DRUGS (2)
  1. CHEMOTHERAPY [Suspect]
     Indication: BREAST CANCER
     Route: 065
     Dates: end: 20100401
  2. HERCEPTIN [Suspect]
     Indication: BREAST CANCER
     Route: 065
     Dates: start: 20100601

REACTIONS (1)
  - ALOPECIA [None]
